FAERS Safety Report 22129250 (Version 3)
Quarter: 2023Q2

REPORT INFORMATION
  Report Type: Report from Study
  Country: US (occurrence: None)
  Receive Date: 20230323
  Receipt Date: 20230515
  Transmission Date: 20230721
  Serious: Yes (Other)
  Sender: FDA-Public Use
  Company Number: US-ROCHE-3313168

PATIENT
  Age: 73 Year
  Sex: Female

DRUGS (2)
  1. OBINUTUZUMAB [Suspect]
     Active Substance: OBINUTUZUMAB
     Indication: Chronic lymphocytic leukaemia
     Dosage: DATE OF LAST PROTOCOL TREATMENT/INTERVENTION PRIOR TO SAE: 03/MAR/2023
     Route: 042
     Dates: start: 20220628, end: 20221025
  2. ACALABRUTINIB [Suspect]
     Active Substance: ACALABRUTINIB
     Indication: Chronic lymphocytic leukaemia
     Dosage: DATE OF LAST PROTOCOL TREATMENT/INTERVENTION PRIOR TO SAE: 03/MAR/2023
     Route: 065
     Dates: start: 20220531

REACTIONS (1)
  - Malignant melanoma [Recovered/Resolved]

NARRATIVE: CASE EVENT DATE: 20230306
